FAERS Safety Report 25206861 (Version 1)
Quarter: 2025Q2

REPORT INFORMATION
  Report Type: Spontaneous
  Country: US (occurrence: US)
  Receive Date: 20250417
  Receipt Date: 20250417
  Transmission Date: 20250716
  Serious: Yes (Life-Threatening, Hospitalization)
  Sender: DR REDDYS
  Company Number: None

PATIENT
  Age: 27 Year
  Sex: Male

DRUGS (1)
  1. FENTANYL [Suspect]
     Active Substance: FENTANYL
     Indication: Product used for unknown indication

REACTIONS (1)
  - CHANTER syndrome [Recovered/Resolved]
